FAERS Safety Report 12226627 (Version 1)
Quarter: 2016Q1

REPORT INFORMATION
  Report Type: Spontaneous
  Country: US (occurrence: US)
  Receive Date: 20160331
  Receipt Date: 20160331
  Transmission Date: 20160526
  Serious: Yes (Death)
  Sender: FDA-Public Use
  Company Number: US-SYNEX-T201601101

PATIENT
  Age: 0 Day

DRUGS (3)
  1. INOMAX [Suspect]
     Active Substance: NITRIC OXIDE
     Indication: NEONATAL HYPOXIA
  2. INOMAX [Suspect]
     Active Substance: NITRIC OXIDE
     Indication: HYPOVENTILATION NEONATAL
  3. INOMAX [Suspect]
     Active Substance: NITRIC OXIDE
     Indication: PULMONARY HYPOPLASIA
     Dosage: 20 PPM, CONTINUOUS
     Dates: start: 20160322

REACTIONS (2)
  - Pulmonary hypoplasia [Fatal]
  - Neonatal respiratory arrest [Fatal]

NARRATIVE: CASE EVENT DATE: 20160322
